FAERS Safety Report 17223076 (Version 2)
Quarter: 2020Q1

REPORT INFORMATION
  Report Type: Spontaneous
  Country: FR (occurrence: FR)
  Receive Date: 20200102
  Receipt Date: 20200326
  Transmission Date: 20200409
  Serious: Yes (Other)
  Sender: FDA-Public Use
  Company Number: FR-AUROBINDO-AUR-APL-2019-108992

PATIENT
  Age: 63 Year
  Sex: Female
  Weight: 64 kg

DRUGS (9)
  1. KISQALI [Suspect]
     Active Substance: RIBOCICLIB
     Dosage: 600 MILLIGRAM, ONCE A DAY
     Route: 048
     Dates: start: 20170718
  2. METFORMINE [Concomitant]
     Active Substance: METFORMIN HYDROCHLORIDE
     Indication: TYPE 2 DIABETES MELLITUS
     Dosage: UNK
     Route: 065
  3. VERAPAMIL [Concomitant]
     Active Substance: VERAPAMIL HYDROCHLORIDE
     Indication: HYPERTENSION
     Dosage: UNK
     Route: 065
  4. STAGID [Concomitant]
     Active Substance: METFORMIN PAMOATE
     Indication: PRODUCT USED FOR UNKNOWN INDICATION
     Dosage: UNK
     Route: 065
  5. LETROZOLE. [Suspect]
     Active Substance: LETROZOLE
     Dosage: UNK 2.5, ONCE A DAY
     Route: 048
     Dates: start: 20170718
  6. KISQALI [Suspect]
     Active Substance: RIBOCICLIB
     Indication: METASTASES TO BONE
     Dosage: UNK
     Route: 065
     Dates: start: 201707
  7. ISOPTINE [Concomitant]
     Active Substance: VERAPAMIL HYDROCHLORIDE
     Indication: PRODUCT USED FOR UNKNOWN INDICATION
     Dosage: UNK
     Route: 065
  8. LETROZOLE. [Suspect]
     Active Substance: LETROZOLE
     Indication: BREAST CANCER
     Dosage: UNK
     Route: 065
     Dates: start: 201707
  9. DIAMICRON [Concomitant]
     Active Substance: GLICLAZIDE
     Indication: PRODUCT USED FOR UNKNOWN INDICATION
     Dosage: UNK
     Route: 065

REACTIONS (2)
  - Blindness [Unknown]
  - Cataract [Recovered/Resolved]

NARRATIVE: CASE EVENT DATE: 201909
